FAERS Safety Report 8589402-X (Version None)
Quarter: 2012Q3

REPORT INFORMATION
  Report Type: 
  Country: None (occurrence: None)
  Receive Date: 20120813
  Receipt Date: 20071107
  Transmission Date: 20120928
  Serious: Yes (Other)
  Sender: FDA-Public Use
  Company Number: CO-PFIZER INC-2012190049

PATIENT
  Age: 47 Year
  Sex: Female

DRUGS (8)
  1. METFORMIN [Concomitant]
     Dosage: 850 MG, TWICE DAILY
  2. ACCURETIC [Suspect]
     Indication: HYPERTENSION
     Dosage: [QUINAPRIL HCL 20 MG]/ [HYDROCHLOROTHIAZIDE 12.5 MG] 1 DF ONCE DAILY
  3. OMEPRAZOLE [Concomitant]
     Dosage: 20 MG, ONCE DAILY
  4. METFORMIN [Concomitant]
     Dosage: 850 MG, ONCE DAILY
  5. OLMESARTAN MEDOXOMIL [Suspect]
     Indication: HYPERTENSION
     Dosage: 20 MG, ONCE DAILY
  6. VERAPAMIL [Concomitant]
     Dosage: 120 MG, TWICE DAILY
  7. LIPITOR [Suspect]
     Indication: DYSLIPIDAEMIA
     Dosage: 10 MG, ONCE DAILY
  8. ACETYLSALICYLIC ACID [Concomitant]
     Dosage: 100 MG, ONCE DAILY

REACTIONS (3)
  - HYPERTENSIVE EMERGENCY [None]
  - PAIN IN EXTREMITY [None]
  - ARTHRALGIA [None]
